FAERS Safety Report 20264305 (Version 2)
Quarter: 2022Q1

REPORT INFORMATION
  Report Type: Report from Study
  Country: US (occurrence: US)
  Receive Date: 20211231
  Receipt Date: 20220103
  Transmission Date: 20220424
  Serious: No
  Sender: FDA-Public Use
  Company Number: US-NOVARTISTESTPH-NVSC2021US300265

PATIENT
  Sex: Male

DRUGS (2)
  1. ENTRESTO [Suspect]
     Active Substance: SACUBITRIL\VALSARTAN
     Indication: Product used for unknown indication
     Dosage: 1 DOSAGE FORM, BID (97/103MG)
     Route: 048
  2. ENTRESTO [Suspect]
     Active Substance: SACUBITRIL\VALSARTAN
     Dosage: 200 MG (97/103) BID
     Route: 048
     Dates: start: 20211219

REACTIONS (5)
  - Nasal pruritus [Not Recovered/Not Resolved]
  - Pain in extremity [Unknown]
  - Diarrhoea [Not Recovered/Not Resolved]
  - Rash [Unknown]
  - Sinus pain [Unknown]
